FAERS Safety Report 19260090 (Version 4)
Quarter: 2021Q3

REPORT INFORMATION
  Report Type: Spontaneous
  Country: US (occurrence: US)
  Receive Date: 20210514
  Receipt Date: 20210706
  Transmission Date: 20211014
  Serious: No
  Sender: FDA-Public Use
  Company Number: US-SA-2021SA158136

PATIENT
  Age: 64 Year
  Sex: Female

DRUGS (1)
  1. LANTUS [Suspect]
     Active Substance: INSULIN GLARGINE
     Indication: TYPE 2 DIABETES MELLITUS
     Dosage: 23 UNITS MORNINGS, 23 UNITS NIGHTS Q12H
     Route: 065

REACTIONS (5)
  - Injection site mass [Unknown]
  - Device issue [Unknown]
  - Injection site bruising [Unknown]
  - Inappropriate schedule of product administration [Unknown]
  - Pain in extremity [Unknown]

NARRATIVE: CASE EVENT DATE: 20210505
